FAERS Safety Report 22392943 (Version 1)
Quarter: 2023Q2

REPORT INFORMATION
  Report Type: Spontaneous
  Country: GR (occurrence: GR)
  Receive Date: 20230601
  Receipt Date: 20230601
  Transmission Date: 20230722
  Serious: Yes (Hospitalization, Other)
  Sender: FDA-Public Use
  Company Number: GR-MLMSERVICE-20230518-4295708-1

PATIENT
  Age: 82 Year
  Sex: Female

DRUGS (2)
  1. METHOTREXATE [Suspect]
     Active Substance: METHOTREXATE
     Indication: Rheumatoid arthritis
     Dosage: 2.5 MG TWICE PER WEEK
  2. METHYLPREDNISOLONE [Suspect]
     Active Substance: METHYLPREDNISOLONE
     Indication: Rheumatoid arthritis

REACTIONS (5)
  - Cryptococcosis [Recovered/Resolved]
  - Osteomyelitis chronic [Recovered/Resolved]
  - Mastitis [Recovered/Resolved]
  - Osteomyelitis [Recovered/Resolved]
  - Deep vein thrombosis [Recovered/Resolved]
